FAERS Safety Report 15715321 (Version 1)
Quarter: 2018Q4

REPORT INFORMATION
  Report Type: Report from Study
  Country: IT (occurrence: IT)
  Receive Date: 20181212
  Receipt Date: 20181212
  Transmission Date: 20190205
  Serious: Yes (Other)
  Sender: FDA-Public Use
  Company Number: IT-PFIZER INC-2018507494

PATIENT
  Age: 53 Year
  Sex: Female

DRUGS (1)
  1. DIFLUCAN [Suspect]
     Active Substance: FLUCONAZOLE
     Indication: FUNGAL INFECTION
     Dosage: 1 DF, 1X/DAY
     Route: 048
     Dates: start: 20181115, end: 20181116

REACTIONS (4)
  - Erythema [Recovering/Resolving]
  - Hypersensitivity [Recovering/Resolving]
  - Oral pruritus [Recovering/Resolving]
  - Pruritus [Recovering/Resolving]

NARRATIVE: CASE EVENT DATE: 20181115
